FAERS Safety Report 10953107 (Version 1)
Quarter: 2015Q1

REPORT INFORMATION
  Report Type: Spontaneous
  Country: DE (occurrence: DE)
  Receive Date: 20150325
  Receipt Date: 20150325
  Transmission Date: 20150721
  Serious: Yes (Death, Hospitalization, Other)
  Sender: FDA-Public Use
  Company Number: DE-ABBVIE-15K-062-1363682-00

PATIENT
  Sex: Male
  Weight: 61.3 kg

DRUGS (16)
  1. ALDACTONE [Concomitant]
     Active Substance: SPIRONOLACTONE
     Indication: PRODUCT USED FOR UNKNOWN INDICATION
  2. REMERGIL [Concomitant]
     Active Substance: MIRTAZAPINE
     Indication: PRODUCT USED FOR UNKNOWN INDICATION
     Dates: end: 20140307
  3. CALCIUM SANDOZ BT [Concomitant]
     Indication: PRODUCT USED FOR UNKNOWN INDICATION
     Dosage: DOSAGE DECREASED
  4. DELIX [Concomitant]
     Active Substance: RAMIPRIL
     Indication: PRODUCT USED FOR UNKNOWN INDICATION
     Dosage: 2.5
  5. TOREM [Concomitant]
     Active Substance: TORSEMIDE
     Indication: PRODUCT USED FOR UNKNOWN INDICATION
     Dosage: 10
  6. EUBIOL [Concomitant]
     Indication: PRODUCT USED FOR UNKNOWN INDICATION
  7. NACL [Concomitant]
     Active Substance: SODIUM CHLORIDE
     Indication: PRODUCT USED FOR UNKNOWN INDICATION
     Route: 048
  8. ASPIRIN. [Concomitant]
     Active Substance: ASPIRIN
     Indication: PRODUCT USED FOR UNKNOWN INDICATION
  9. IBUHEXAL [Concomitant]
     Active Substance: IBUPROFEN
     Indication: PRODUCT USED FOR UNKNOWN INDICATION
  10. FERRO SANOL DUO [Concomitant]
     Indication: PRODUCT USED FOR UNKNOWN INDICATION
  11. ESPUMISAN [Concomitant]
     Indication: PRODUCT USED FOR UNKNOWN INDICATION
     Dosage: 20 GTT
  12. PANTOZOL [Concomitant]
     Active Substance: PANTOPRAZOLE SODIUM
     Indication: PRODUCT USED FOR UNKNOWN INDICATION
  13. SIMVAHEXAL [Concomitant]
     Active Substance: SIMVASTATIN
     Indication: PRODUCT USED FOR UNKNOWN INDICATION
  14. HUMIRA [Suspect]
     Active Substance: ADALIMUMAB
     Indication: PRODUCT USED FOR UNKNOWN INDICATION
     Route: 058
     Dates: start: 20110711, end: 201303
  15. METOHEXAL [Concomitant]
     Active Substance: METOPROLOL SUCCINATE
     Indication: PRODUCT USED FOR UNKNOWN INDICATION
  16. ALLOPURINOL. [Concomitant]
     Active Substance: ALLOPURINOL
     Indication: PRODUCT USED FOR UNKNOWN INDICATION
     Dosage: 300

REACTIONS (40)
  - Erythema [Fatal]
  - Joint swelling [Fatal]
  - Dyspnoea [Fatal]
  - Abdominal pain upper [Fatal]
  - Loss of proprioception [Fatal]
  - Dyspnoea [Fatal]
  - Ischaemic cerebral infarction [Fatal]
  - Haematemesis [Fatal]
  - Left ventricular hypertrophy [Fatal]
  - Hypotonia [Fatal]
  - Myocardial infarction [Fatal]
  - Dehydration [Fatal]
  - Dysarthria [Fatal]
  - Embolism arterial [Fatal]
  - Depressed mood [Fatal]
  - Ataxia [Fatal]
  - Hallucination [Fatal]
  - Peripheral swelling [Fatal]
  - Conjunctivitis [Fatal]
  - Sleep disorder [Fatal]
  - Joint swelling [Fatal]
  - Hemiparesis [Fatal]
  - Cellulitis [Fatal]
  - Restlessness [Fatal]
  - Disorientation [Fatal]
  - Urinary tract infection [Fatal]
  - Cholecystectomy [Fatal]
  - General physical health deterioration [Fatal]
  - Dilatation ventricular [Fatal]
  - Aphasia [Fatal]
  - Hallucination, auditory [Fatal]
  - Procedural complication [Fatal]
  - Mental disorder due to a general medical condition [Fatal]
  - Gouty arthritis [Fatal]
  - Erythema [Fatal]
  - Hepatic steatosis [Fatal]
  - Breath odour [Fatal]
  - Gastroenteritis norovirus [Fatal]
  - Coronary artery disease [Fatal]
  - Iron deficiency anaemia [Fatal]

NARRATIVE: CASE EVENT DATE: 201203
